FAERS Safety Report 20138211 (Version 2)
Quarter: 2021Q4

REPORT INFORMATION
  Report Type: Report from Study
  Country: US (occurrence: US)
  Receive Date: 20211202
  Receipt Date: 20211216
  Transmission Date: 20220304
  Serious: No
  Sender: FDA-Public Use
  Company Number: US-KYOWAKIRIN-2021BKK020083

PATIENT

DRUGS (2)
  1. CRYSVITA [Suspect]
     Active Substance: BUROSUMAB-TWZA
     Indication: Hereditary hypophosphataemic rickets
     Dosage: COMBINED 30 MG AND 20 MG TO ACHIEVE 50 MG, EVERY 14 DAYS
     Route: 058
     Dates: start: 20190123
  2. CRYSVITA [Suspect]
     Active Substance: BUROSUMAB-TWZA
     Indication: Hereditary hypophosphataemic rickets
     Dosage: COMBINED 30 MG AND 20 MG TO ACHIEVE 50 MG, EVERY 14 DAYS
     Route: 058
     Dates: start: 20190123

REACTIONS (3)
  - Hyperaesthesia teeth [Unknown]
  - Rhinorrhoea [Unknown]
  - Cough [Unknown]

NARRATIVE: CASE EVENT DATE: 20210101
